FAERS Safety Report 13954520 (Version 2)
Quarter: 2017Q3

REPORT INFORMATION
  Report Type: Spontaneous
  Country: JP (occurrence: JP)
  Receive Date: 20170911
  Receipt Date: 20170925
  Transmission Date: 20171128
  Serious: Yes (Death, Hospitalization)
  Sender: FDA-Public Use
  Company Number: JP-ELI_LILLY_AND_COMPANY-JP201709002183

PATIENT
  Age: 67 Year
  Sex: Female
  Weight: 45 kg

DRUGS (8)
  1. CYRAMZA [Suspect]
     Active Substance: RAMUCIRUMAB
     Indication: LUNG SQUAMOUS CELL CARCINOMA STAGE IV
     Dosage: 437 MG, CYCLICAL
     Route: 041
     Dates: start: 20170417, end: 20170417
  2. DOCETAXEL. [Suspect]
     Active Substance: DOCETAXEL
     Dosage: 67.2 MG, CYCLICAL
     Route: 041
     Dates: start: 20170515, end: 20170515
  3. FILGRASTIM [Concomitant]
     Active Substance: FILGRASTIM
     Dosage: 75 UG, DAILY
     Route: 058
     Dates: start: 20170522, end: 20170525
  4. CYRAMZA [Suspect]
     Active Substance: RAMUCIRUMAB
     Dosage: 430 MG, CYCLICAL
     Route: 041
     Dates: start: 20170515, end: 20170612
  5. DOCETAXEL. [Suspect]
     Active Substance: DOCETAXEL
     Indication: LUNG SQUAMOUS CELL CARCINOMA STAGE IV
     Dosage: 84 MG, CYCLICAL
     Route: 041
     Dates: start: 20170417, end: 20170417
  6. FILGRASTIM [Concomitant]
     Active Substance: FILGRASTIM
     Indication: WHITE BLOOD CELL COUNT DECREASED
     Dosage: 75 UG, DAILY
     Route: 058
     Dates: start: 20170424, end: 20170427
  7. DOCETAXEL. [Suspect]
     Active Substance: DOCETAXEL
     Dosage: 53.8 MG, CYCLICAL
     Route: 041
     Dates: start: 20170612, end: 20170612
  8. FILGRASTIM [Concomitant]
     Active Substance: FILGRASTIM
     Dosage: 75 UG, DAILY
     Route: 058
     Dates: start: 20170618, end: 20170618

REACTIONS (2)
  - Septic shock [Fatal]
  - Febrile neutropenia [Fatal]

NARRATIVE: CASE EVENT DATE: 20170620
